FAERS Safety Report 25271854 (Version 3)
Quarter: 2025Q2

REPORT INFORMATION
  Report Type: Spontaneous
  Country: PT (occurrence: PT)
  Receive Date: 20250506
  Receipt Date: 20250513
  Transmission Date: 20250717
  Serious: Yes (Other)
  Sender: JOHNSON AND JOHNSON
  Company Number: None

PATIENT
  Sex: Male

DRUGS (4)
  1. RILPIVIRINE [Suspect]
     Active Substance: RILPIVIRINE
     Indication: HIV infection
     Dosage: 600 MG CABOTEGRAVIR + 900 MG RILPIVIRINE EVERY 2 MONTHS (AFTER INDUCTION PERIOD)
     Route: 030
     Dates: start: 20250121, end: 20250219
  2. RILPIVIRINE [Suspect]
     Active Substance: RILPIVIRINE
     Route: 065
     Dates: start: 20250219, end: 20250219
  3. VOCABRIA [Suspect]
     Active Substance: CABOTEGRAVIR SODIUM
     Indication: HIV infection
     Dosage: 600 MG CABOTEGRAVIR + 900 MG RILPIVIRINE EVERY 2 MONTHS (AFTER INDUCTION PERIOD)
     Dates: start: 20250121, end: 20250219
  4. VOCABRIA [Suspect]
     Active Substance: CABOTEGRAVIR SODIUM
     Route: 065
     Dates: start: 20250219, end: 20250219

REACTIONS (1)
  - Pruritus [Recovered/Resolved]

NARRATIVE: CASE EVENT DATE: 20250219
